FAERS Safety Report 16215931 (Version 3)
Quarter: 2019Q2

REPORT INFORMATION
  Report Type: Spontaneous
  Country: JP (occurrence: JP)
  Receive Date: 20190419
  Receipt Date: 20190524
  Transmission Date: 20190711
  Serious: Yes (Death, Other)
  Sender: FDA-Public Use
  Company Number: JP-TEVA-2019-JP-1038978

PATIENT
  Age: 70 Year
  Sex: Male
  Weight: 57 kg

DRUGS (24)
  1. DERMOVATE [Concomitant]
     Active Substance: CLOBETASOL
     Route: 065
  2. MENESIT [Concomitant]
     Active Substance: CARBIDOPA\LEVODOPA
     Route: 065
  3. FLOMOX [Concomitant]
     Route: 065
  4. RIVOTRIL [Concomitant]
     Active Substance: CLONAZEPAM
     Route: 065
     Dates: start: 20180302, end: 20190209
  5. RENIVACE [Concomitant]
     Active Substance: ENALAPRIL
     Dates: start: 20171122, end: 20190218
  6. DEPAS [Concomitant]
     Route: 065
  7. DOPS [Concomitant]
     Active Substance: DROXIDOPA
     Dates: start: 20171122, end: 20180706
  8. MAGMITT [Concomitant]
     Active Substance: MAGNESIUM OXIDE
     Route: 065
  9. MUCOSOLVAN [Concomitant]
     Active Substance: AMBROXOL HYDROCHLORIDE
     Route: 065
  10. ASTOMIN [Concomitant]
     Active Substance: DIMEMORFAN
     Route: 065
  11. AZILECT [Suspect]
     Active Substance: RASAGILINE MESYLATE
     Dosage: 1 MILLIGRAM DAILY;
     Route: 048
     Dates: start: 20181116, end: 20190131
  12. STALEVO [Concomitant]
     Active Substance: CARBIDOPA\ENTACAPONE\LEVODOPA
     Route: 065
     Dates: start: 20171122, end: 20190209
  13. GASMOTIN [Concomitant]
     Active Substance: MOSAPRIDE CITRATE
     Route: 065
     Dates: start: 20180302, end: 20190118
  14. HYALONSAN [Concomitant]
     Route: 065
  15. UREPEARL [Concomitant]
     Active Substance: UREA
     Route: 065
  16. AZILECT [Suspect]
     Active Substance: RASAGILINE MESYLATE
     Indication: PARKINSON^S DISEASE
     Dosage: .5 MILLIGRAM DAILY;
     Route: 048
     Dates: start: 20181005, end: 20181115
  17. NEUPRO [Concomitant]
     Active Substance: ROTIGOTINE
     Route: 065
     Dates: start: 20171122, end: 20190209
  18. LEXOTAN [Concomitant]
     Active Substance: BROMAZEPAM
     Route: 065
     Dates: start: 20171201, end: 20190209
  19. ARICEPT [Concomitant]
     Active Substance: DONEPEZIL HYDROCHLORIDE
     Dates: start: 20180118, end: 20180118
  20. AMITIZA [Concomitant]
     Active Substance: LUBIPROSTONE
     Route: 065
  21. AZILECT [Suspect]
     Active Substance: RASAGILINE MESYLATE
     Dosage: .5 MILLIGRAM DAILY;
     Route: 048
     Dates: start: 20190201, end: 20190209
  22. NOURIAST [Concomitant]
     Active Substance: ISTRADEFYLLINE
     Route: 065
     Dates: start: 20171122, end: 20190209
  23. SEROQUEL [Concomitant]
     Active Substance: QUETIAPINE FUMARATE
     Route: 065
     Dates: start: 20190209, end: 20190209
  24. QUETIAPINE. [Concomitant]
     Active Substance: QUETIAPINE
     Route: 065

REACTIONS (9)
  - Restlessness [Recovering/Resolving]
  - Asphyxia [Fatal]
  - Cardio-respiratory arrest [Unknown]
  - Dyskinesia [Unknown]
  - Vomiting [Fatal]
  - Hallucination [Unknown]
  - Blood creatine phosphokinase increased [Recovering/Resolving]
  - Pollakiuria [Recovered/Resolved]
  - Insomnia [Unknown]

NARRATIVE: CASE EVENT DATE: 201901
